FAERS Safety Report 6204360-0 (Version None)
Quarter: 2009Q2

REPORT INFORMATION
  Report Type: 
  Country: None (occurrence: None)
  Receive Date: 20090527
  Receipt Date: 20090520
  Transmission Date: 20091009
  Serious: Yes (Hospitalization, Other)
  Sender: FDA-Public Use
  Company Number: JP-B.I. PHARMACEUTICALS,INC./RIDGEFIELD-2009-BP-03910NB

PATIENT
  Sex: Female
  Weight: 60 kg

DRUGS (3)
  1. MICARDIS [Suspect]
     Indication: HYPERTENSION
     Dosage: 20MG
     Route: 048
     Dates: start: 20070123, end: 20080908
  2. NORVASC [Concomitant]
     Indication: HYPERTENSION
     Dosage: 2.5MG
     Route: 048
     Dates: start: 20061001
  3. MEVALOTIN [Concomitant]
     Dosage: 10MG
     Route: 048
     Dates: start: 20061001

REACTIONS (1)
  - PANCREATIC CARCINOMA [None]
